FAERS Safety Report 25512780 (Version 1)
Quarter: 2025Q3

REPORT INFORMATION
  Report Type: Spontaneous
  Country: JP (occurrence: JP)
  Receive Date: 20250703
  Receipt Date: 20250703
  Transmission Date: 20251020
  Serious: Yes (Other)
  Sender: PFIZER
  Company Number: JP-PFIZER INC-202500129682

PATIENT
  Age: 53 Year
  Sex: Female

DRUGS (5)
  1. HALCION [Suspect]
     Active Substance: TRIAZOLAM
     Route: 048
  2. TRIAZOLAM [Suspect]
     Active Substance: TRIAZOLAM
     Route: 048
  3. QUETIAPINE [Concomitant]
     Active Substance: QUETIAPINE
     Route: 048
  4. BIPERIDEN [Concomitant]
     Active Substance: BIPERIDEN
     Route: 048
  5. DAYVIGO [Concomitant]
     Active Substance: LEMBOREXANT
     Route: 048

REACTIONS (2)
  - Tooth abscess [Unknown]
  - Anaesthetic complication [Unknown]
